FAERS Safety Report 6231623-5 (Version None)
Quarter: 2009Q2

REPORT INFORMATION
  Report Type: 
  Country: None (occurrence: None)
  Receive Date: 20090616
  Receipt Date: 20090609
  Transmission Date: 20091009
  Serious: Yes (Death, Other)
  Sender: FDA-Public Use
  Company Number: US-TEVA-194370USA

PATIENT
  Sex: Male
  Weight: 81 kg

DRUGS (1)
  1. CLARAVIS [Suspect]
     Route: 048
     Dates: start: 20081219, end: 20090501

REACTIONS (1)
  - MYOCARDIAL INFARCTION [None]
